FAERS Safety Report 13358493 (Version 1)
Quarter: 2017Q1

REPORT INFORMATION
  Report Type: Spontaneous
  Country: DE (occurrence: DE)
  Receive Date: 20170322
  Receipt Date: 20170322
  Transmission Date: 20170429
  Serious: Yes (Life-Threatening, Hospitalization)
  Sender: FDA-Public Use
  Company Number: DE-TEVA-749640GER

PATIENT
  Age: 23 Year
  Sex: Male
  Weight: 104 kg

DRUGS (2)
  1. VENLAFAXINE [Suspect]
     Active Substance: VENLAFAXINE HYDROCHLORIDE
     Indication: DEPRESSION
     Route: 048
  2. PIPAMPERONE [Suspect]
     Active Substance: PIPAMPERONE
     Indication: SLEEP DISORDER
     Dosage: 0-0-20-40
     Route: 048
     Dates: start: 20170223, end: 20170227

REACTIONS (1)
  - Blood creatine phosphokinase increased [Unknown]

NARRATIVE: CASE EVENT DATE: 20170227
